FAERS Safety Report 9602989 (Version 4)
Quarter: 2021Q2

REPORT INFORMATION
  Report Type: Spontaneous
  Country: CA (occurrence: CA)
  Receive Date: 20131007
  Receipt Date: 20210604
  Transmission Date: 20210717
  Serious: Yes (Hospitalization, Disabling)
  Sender: FDA-Public Use
  Company Number: CA-ROCHE-1282560

PATIENT
  Age: 42 Year
  Sex: Female
  Weight: 72 kg

DRUGS (13)
  1. AVASTIN [Suspect]
     Active Substance: BEVACIZUMAB
     Route: 042
  2. CARBOPLATIN. [Suspect]
     Active Substance: CARBOPLATIN
     Route: 042
  3. DOCETAXEL. [Suspect]
     Active Substance: DOCETAXEL
     Route: 042
  4. HYDROCHLOROTHIAZIDE. [Concomitant]
     Active Substance: HYDROCHLOROTHIAZIDE
  5. AMLODIPINE [Concomitant]
     Active Substance: AMLODIPINE BESYLATE
  6. NORVASC [Concomitant]
     Active Substance: AMLODIPINE BESYLATE
  7. AVASTIN [Suspect]
     Active Substance: BEVACIZUMAB
     Indication: HER2 POSITIVE BREAST CANCER
     Route: 042
  8. CARBOPLATIN. [Suspect]
     Active Substance: CARBOPLATIN
     Indication: HER2 POSITIVE BREAST CANCER
     Dosage: THERAPY DURATION: 128 DAYS
     Route: 042
  9. PANTOLOC [Concomitant]
     Active Substance: PANTOPRAZOLE SODIUM
  10. DOCETAXEL. [Suspect]
     Active Substance: DOCETAXEL
     Indication: HER2 POSITIVE BREAST CANCER
     Dosage: THERAPY DURATION: 128 DAYS
     Route: 042
  11. HERCEPTIN [Suspect]
     Active Substance: TRASTUZUMAB
     Route: 041
  12. PANTOPRAZOLE [Concomitant]
     Active Substance: PANTOPRAZOLE
  13. HERCEPTIN [Suspect]
     Active Substance: TRASTUZUMAB
     Indication: HER2 POSITIVE BREAST CANCER
     Dosage: THERAPY DURATION: 128 DAYS?VIALS
     Route: 041

REACTIONS (2)
  - Encephalopathy [Recovered/Resolved]
  - Febrile neutropenia [Recovered/Resolved]
